FAERS Safety Report 4415179-5 (Version None)
Quarter: 2004Q3

REPORT INFORMATION
  Report Type: 
  Country: None (occurrence: None)
  Receive Date: 20040730
  Receipt Date: 20040722
  Transmission Date: 20050211
  Serious: Yes (Hospitalization)
  Sender: FDA-Public Use
  Company Number: US-2004-025540

PATIENT
  Age: 74 Year
  Sex: Male
  Weight: 78.7 kg

DRUGS (19)
  1. FLUDARA [Suspect]
     Indication: CHRONIC LYMPHOCYTIC LEUKAEMIA
     Dosage: 50 MG DAILY (DAYS 1-5) Q28 DAYS, INTRAVENOUS
     Route: 042
     Dates: start: 20040225
  2. CAMPATH [Suspect]
     Indication: CHRONIC LYMPHOCYTIC LEUKAEMIA
     Dosage: 30 MG DAILY (DAYS 1-5) Q28 DAYS, SUBCUTANEOUS
     Route: 058
     Dates: start: 20040225
  3. DEMEROL [Suspect]
     Indication: CHILLS
     Dosage: 25 MG, AS REQ'D INTRAVENOUS
     Route: 042
     Dates: start: 20040324, end: 20040324
  4. AVANDIA [Concomitant]
  5. GLUBURIDE (GLIBENCLAMIDE) [Concomitant]
  6. ALLOPURINOL [Concomitant]
  7. BACTRIM DS [Concomitant]
  8. ACYCVLOVIR (ACICLOVIR) [Concomitant]
  9. BENADRYL [Concomitant]
  10. LASIX [Concomitant]
  11. TYLENOL [Concomitant]
  12. ... [Concomitant]
  13. .... [Concomitant]
  14. HUMALOG [Concomitant]
  15. ..... [Concomitant]
  16. NEUPOGEN [Concomitant]
  17. LEVAQUIN [Concomitant]
  18. RED BLOOD CELLS [Concomitant]
  19. ALLOPURINOL [Concomitant]

REACTIONS (3)
  - BODY TEMPERATURE INCREASED [None]
  - CHILLS [None]
  - SYNCOPE VASOVAGAL [None]
